FAERS Safety Report 6765984-5 (Version None)
Quarter: 2010Q2

REPORT INFORMATION
  Report Type: 
  Country: None (occurrence: None)
  Receive Date: 20100611
  Receipt Date: 20100604
  Transmission Date: 20101027
  Serious: Yes (Hospitalization)
  Sender: FDA-Public Use
  Company Number: A0425948A

PATIENT
  Age: 69 Year
  Sex: Male

DRUGS (6)
  1. AVANDIA [Suspect]
     Dosage: 4MG TWICE PER DAY
     Route: 048
  2. INSULIN [Concomitant]
  3. GLUCOVANCE [Concomitant]
  4. ZOCOR [Concomitant]
  5. PRINZIDE [Concomitant]
  6. ASPIRIN [Concomitant]

REACTIONS (5)
  - CARDIAC DISORDER [None]
  - CORONARY ARTERY DISEASE [None]
  - FRACTURE [None]
  - OSTEOGENESIS IMPERFECTA [None]
  - WEIGHT INCREASED [None]
